FAERS Safety Report 6749518-7 (Version None)
Quarter: 2010Q2

REPORT INFORMATION
  Report Type: 
  Country: None (occurrence: None)
  Receive Date: 20100601
  Receipt Date: 20100520
  Transmission Date: 20101027
  Serious: Yes (Other)
  Sender: FDA-Public Use
  Company Number: GB-ASTRAZENECA-2010SE23184

PATIENT
  Age: 39 Year
  Sex: Female
  Weight: 96.5 kg

DRUGS (3)
  1. LIDOCAINE HYDROCHLORIDE [Suspect]
     Indication: SURGERY
     Route: 058
     Dates: start: 20100310
  2. ORLISTAT [Concomitant]
     Indication: WEIGHT DECREASED
     Route: 048
     Dates: start: 20100310
  3. ROZEX [Concomitant]
     Indication: ROSACEA
     Route: 061
     Dates: start: 20100210

REACTIONS (2)
  - ANXIETY [None]
  - CARBOHYDRATE ANTIGEN 125 INCREASED [None]
